FAERS Safety Report 23084461 (Version 1)
Quarter: 2023Q4

REPORT INFORMATION
  Report Type: Spontaneous
  Country: US (occurrence: None)
  Receive Date: 20231018
  Receipt Date: 20231018
  Transmission Date: 20240110
  Serious: Yes (Hospitalization)
  Sender: FDA-Public Use
  Company Number: None

PATIENT
  Age: 69 Year
  Sex: Male

DRUGS (1)
  1. VANCOMYCIN [Suspect]
     Active Substance: VANCOMYCIN
     Dosage: FREQUENCY : DAILY;?
     Route: 042
     Dates: start: 20221220, end: 20230111

REACTIONS (11)
  - Tubulointerstitial nephritis [None]
  - Cellulitis [None]
  - Skin ulcer [None]
  - Skin ulcer [None]
  - Lymphoedema [None]
  - Procedural failure [None]
  - Extremity contracture [None]
  - Biopsy bone abnormal [None]
  - Osteomyelitis [None]
  - Complication associated with device [None]
  - Device dislocation [None]

NARRATIVE: CASE EVENT DATE: 20230117
